FAERS Safety Report 22918165 (Version 3)
Quarter: 2023Q4

REPORT INFORMATION
  Report Type: Spontaneous
  Country: JP (occurrence: JP)
  Receive Date: 20230907
  Receipt Date: 20231205
  Transmission Date: 20240110
  Serious: Yes (Hospitalization)
  Sender: FDA-Public Use
  Company Number: JP-ELI_LILLY_AND_COMPANY-JP202309001753

PATIENT
  Sex: Female
  Weight: 44 kg

DRUGS (8)
  1. VERZENIO [Suspect]
     Active Substance: ABEMACICLIB
     Indication: Breast cancer recurrent
     Dosage: 150 MG, BID
     Route: 048
     Dates: start: 20230628, end: 20230716
  2. VERZENIO [Suspect]
     Active Substance: ABEMACICLIB
     Dosage: 150 MG, BID
     Route: 048
     Dates: start: 20230718, end: 20230722
  3. VERZENIO [Suspect]
     Active Substance: ABEMACICLIB
     Dosage: 150 MG, BID
     Route: 048
     Dates: start: 20230724, end: 20230726
  4. FASLODEX [Concomitant]
     Active Substance: FULVESTRANT
     Indication: Breast cancer recurrent
     Dosage: 500 MG, OTHER
     Route: 030
     Dates: start: 20230628
  5. DENOSUMAB [Concomitant]
     Active Substance: DENOSUMAB
     Indication: Metastases to bone
     Dosage: 120 MG, 4/W
     Route: 058
     Dates: start: 20230726, end: 20230726
  6. MIYA-BM [Concomitant]
     Active Substance: CLOSTRIDIUM BUTYRICUM SPORES STRAIN M-55
     Indication: Prophylaxis against diarrhoea
     Dosage: 6 G, TID
     Route: 048
  7. CALCIUM CARBONATE\CHOLECALCIFEROL\MAGNESIUM CARBONATE [Concomitant]
     Active Substance: CALCIUM CARBONATE\CHOLECALCIFEROL\MAGNESIUM CARBONATE
     Dosage: 2 DOSAGE FORM, DAILY
     Route: 048
     Dates: start: 20230628, end: 20230726
  8. BUTYLSCOPOLAMINE BROMIDE [Concomitant]
     Active Substance: BUTYLSCOPOLAMINE BROMIDE
     Dosage: 10 MG, PRN
     Route: 048
     Dates: start: 20230628, end: 20230726

REACTIONS (5)
  - Drug-induced liver injury [Recovering/Resolving]
  - Idiopathic urticaria [Recovered/Resolved]
  - Diarrhoea [Recovered/Resolved]
  - Nausea [Recovered/Resolved]
  - Nasopharyngitis [Recovered/Resolved]

NARRATIVE: CASE EVENT DATE: 20230101
